FAERS Safety Report 9414312 (Version 1)
Quarter: 2013Q3

REPORT INFORMATION
  Report Type: Spontaneous
  Country: IE (occurrence: IE)
  Receive Date: 20130723
  Receipt Date: 20130723
  Transmission Date: 20140515
  Serious: Yes (Other)
  Sender: FDA-Public Use
  Company Number: IE-B.I. PHARMACEUTICALS,INC./RIDGEFIELD-2013-UK-01436UK

PATIENT
  Age: 54 Year
  Sex: Female

DRUGS (13)
  1. MIRAPEXIN [Suspect]
     Indication: RESTLESS LEGS SYNDROME
     Dosage: 0.088 MG
     Route: 048
     Dates: start: 20130624
  2. EPILIM ENTERIC [Concomitant]
     Indication: EPILEPSY
     Dosage: 1500 MG
     Route: 048
  3. LAMICTAL [Concomitant]
     Indication: EPILEPSY
     Dosage: 100 MG
  4. PHENOBARBITAL [Concomitant]
     Indication: EPILEPSY
     Dosage: 60 MG
     Route: 048
  5. FRUMIL [Concomitant]
     Indication: HYPERTENSION
     Dosage: 1 ANZ
     Route: 048
  6. METFORMIN [Concomitant]
     Indication: DIABETES MELLITUS
     Dosage: 2 ANZ
     Route: 048
  7. BISOPROLOL FUMARATE [Concomitant]
     Indication: HYPERTENSION
     Dosage: 1 ANZ
     Route: 048
  8. ELTROXIN [Concomitant]
     Indication: HYPOTHYROIDISM
     Dosage: 1 (M-T), 2 (F-S) 100MG
     Route: 048
  9. ELTROXIN [Concomitant]
     Dosage: 1 (M-T) 50MG
     Route: 048
  10. NEXIUM [Concomitant]
     Indication: PROPHYLAXIS AGAINST GASTROINTESTINAL ULCER
     Dosage: 40 MG
     Route: 048
  11. CYMBALTA [Concomitant]
     Indication: DEPRESSION
     Dosage: 120 MG
     Route: 048
  12. ZILEZE [Concomitant]
     Indication: INSOMNIA
     Dosage: 7.5 MG
     Route: 048
  13. ZOTON FASTAB [Concomitant]
     Indication: PROPHYLAXIS AGAINST GASTROINTESTINAL ULCER
     Dosage: 30 MG
     Route: 048

REACTIONS (2)
  - Petit mal epilepsy [Recovered/Resolved]
  - Headache [Recovered/Resolved]
